FAERS Safety Report 9124380 (Version 1)
Quarter: 2013Q1

REPORT INFORMATION
  Report Type: Spontaneous
  Country: IQ (occurrence: IQ)
  Receive Date: 20130227
  Receipt Date: 20130227
  Transmission Date: 20140127
  Serious: Yes (Death)
  Sender: FDA-Public Use
  Company Number: PHHY2013IQ019154

PATIENT
  Age: 40 Year
  Sex: Female

DRUGS (1)
  1. AMPICILLIN [Suspect]
     Dosage: 4 DF, QD

REACTIONS (3)
  - Stevens-Johnson syndrome [Fatal]
  - Rash generalised [Fatal]
  - Visual impairment [Fatal]
